FAERS Safety Report 9670396 (Version 3)
Quarter: 2013Q4

REPORT INFORMATION
  Report Type: Report from Study
  Country: US (occurrence: US)
  Receive Date: 20131105
  Receipt Date: 20131223
  Transmission Date: 20140711
  Serious: Yes (Hospitalization)
  Sender: FDA-Public Use
  Company Number: US-PFIZER INC-2013311700

PATIENT
  Age: 65 Year
  Sex: Female
  Weight: 160.5 kg

DRUGS (21)
  1. REVATIO [Suspect]
     Indication: PULMONARY ARTERIAL HYPERTENSION
     Dosage: 120 MG (40 MG, 3 IN 1 D)
     Dates: start: 200803
  2. TYVASO [Suspect]
     Indication: PULMONARY ARTERIAL HYPERTENSION
     Dosage: 216 MCG (54 MCG (6UG 9 TIMES), 4 IN 1), ROUTE: INHALED, AEROSOL FOR INHALATION
     Route: 055
     Dates: start: 201010, end: 20130915
  3. LETAIRIS [Suspect]
     Indication: PULMONARY ARTERIAL HYPERTENSION
     Dosage: 5 MG, (1 IN 1 D)
     Route: 048
     Dates: start: 200803
  4. ACTOS [Concomitant]
     Dosage: 45 MG, 1X/DAY
     Dates: start: 1990
  5. ALPRAZOLAM [Concomitant]
     Dosage: 0.25 MG, AS NEEDED
  6. ACETYLSALICYLIC ACID [Concomitant]
     Dosage: UNK
     Dates: start: 2008
  7. COUMADIN [Concomitant]
     Dosage: UNK
     Dates: start: 2008
  8. PROCRIT [Concomitant]
     Indication: VARICES OESOPHAGEAL
     Dosage: 2 IN 1 WK
     Dates: start: 2003
  9. SLOW-FE [Concomitant]
     Dosage: UNK
     Dates: start: 2003
  10. LANTUS [Concomitant]
     Dosage: 14 IU, UNK
     Dates: start: 1990
  11. ACIDOPHILUS [Concomitant]
     Dosage: UNK
     Dates: start: 2008
  12. MIDODRINE [Concomitant]
     Dosage: UNK
     Dates: start: 2010
  13. CENTRUM [Concomitant]
     Dosage: UNK
     Dates: start: 1990
  14. OMEPRAZOLE [Concomitant]
     Dosage: 80 MG, (40 MG , 2 IN 1 D)
     Dates: start: 2011
  15. PRAVASTATIN [Concomitant]
     Dosage: 20 MG, 1X/DAY
     Dates: start: 1990
  16. RENAGEL [Concomitant]
     Dosage: UNK
     Dates: start: 2003
  17. SENSIPAR [Concomitant]
     Dosage: 40 MG, (40 MG, 1 IN 1D)
     Dates: start: 2012
  18. FOLIC ACID [Concomitant]
  19. IRON [Concomitant]
     Route: 042
  20. VITAMIN D [Concomitant]
     Route: 042
  21. FISH OIL [Concomitant]

REACTIONS (1)
  - Hypotension [Recovered/Resolved]
